FAERS Safety Report 9191441 (Version 2)
Quarter: 2013Q2

REPORT INFORMATION
  Report Type: Spontaneous
  Country: DE (occurrence: DE)
  Receive Date: 20130326
  Receipt Date: 20130405
  Transmission Date: 20140414
  Serious: Yes (Other)
  Sender: FDA-Public Use
  Company Number: CHPA2013DE004799

PATIENT
  Age: 57 Year
  Sex: Female
  Weight: 101 kg

DRUGS (2)
  1. OTRIVEN [Suspect]
     Indication: NASAL CONGESTION
     Dosage: 2 DF, QD
     Route: 045
  2. L-THYROXIN [Concomitant]
     Dosage: 100 UG, UNK

REACTIONS (5)
  - Throat irritation [Recovering/Resolving]
  - Influenza like illness [Recovering/Resolving]
  - Dysphonia [Recovering/Resolving]
  - Oropharyngeal discomfort [Recovering/Resolving]
  - Hypoaesthesia [Recovering/Resolving]
